FAERS Safety Report 10178494 (Version 2)
Quarter: 2014Q2

REPORT INFORMATION
  Report Type: Spontaneous
  Country: FR (occurrence: FR)
  Receive Date: 20140519
  Receipt Date: 20140530
  Transmission Date: 20141212
  Serious: Yes (Hospitalization)
  Sender: FDA-Public Use
  Company Number: FR-JNJFOC-20140505234

PATIENT
  Age: 61 Year
  Sex: Female

DRUGS (7)
  1. DOXORUBICIN HYDROCHLORIDE (CAELYX) [Suspect]
     Indication: OVARIAN CANCER
     Route: 042
     Dates: start: 20140506, end: 20140506
  2. DOXORUBICIN HYDROCHLORIDE (CAELYX) [Suspect]
     Indication: OVARIAN CANCER
     Dosage: G5%. DURING 1 HOUR (1MG/MIN)
     Route: 042
     Dates: start: 20140418, end: 20140418
  3. ALIMTA [Concomitant]
     Indication: OVARIAN CANCER
     Route: 065
     Dates: start: 20010105
  4. CISPLATINE [Concomitant]
     Indication: OVARIAN CANCER
     Route: 065
     Dates: start: 20010105
  5. CARBOPLATINE [Concomitant]
     Indication: OVARIAN CANCER
     Route: 065
     Dates: start: 20010105
  6. ENDOXAN [Concomitant]
     Indication: OVARIAN CANCER
     Route: 065
     Dates: start: 20010105
  7. GEMOX [Concomitant]
     Indication: OVARIAN CANCER
     Route: 065
     Dates: start: 20010105

REACTIONS (4)
  - Chest pain [Recovered/Resolved]
  - Back pain [Recovered/Resolved]
  - Electrocardiogram T wave amplitude decreased [Recovered/Resolved]
  - Erythema [Recovered/Resolved]
